FAERS Safety Report 8333630-5 (Version None)
Quarter: 2012Q2

REPORT INFORMATION
  Report Type: 
  Country: None (occurrence: None)
  Receive Date: 20120503
  Receipt Date: 20101208
  Transmission Date: 20120825
  Serious: No
  Sender: FDA-Public Use
  Company Number: US-TEVA-2010006374

PATIENT
  Sex: Male
  Weight: 102.15 kg

DRUGS (2)
  1. NEXIUM [Concomitant]
  2. NUVIGIL [Suspect]
     Indication: SLEEP APNOEA SYNDROME
     Dosage: 250 MILLIGRAM;
     Route: 048
     Dates: start: 20090101, end: 20101201

REACTIONS (2)
  - MOUTH ULCERATION [None]
  - DRY MOUTH [None]
